FAERS Safety Report 24216793 (Version 1)
Quarter: 2024Q3

REPORT INFORMATION
  Report Type: Other
  Country: FR (occurrence: FR)
  Receive Date: 20240816
  Receipt Date: 20240816
  Transmission Date: 20241017
  Serious: Yes (Death, Congenital Anomaly, Other)
  Sender: ZYDUS PHARM
  Company Number: None

PATIENT

DRUGS (3)
  1. TRAMADOL [Suspect]
     Active Substance: TRAMADOL\TRAMADOL HYDROCHLORIDE
     Indication: Pain
     Dosage: UNK
     Route: 064
     Dates: start: 20200522, end: 20210114
  2. ABILIFY [Suspect]
     Active Substance: ARIPIPRAZOLE
     Indication: Psychotic disorder
     Dosage: 15 MILLIGRAM, QD
     Route: 064
     Dates: start: 20200522, end: 20210114
  3. IMOVANE [Suspect]
     Active Substance: ZOPICLONE
     Indication: Insomnia
     Dosage: 7.5 MILLIGRAM, QD
     Route: 064
     Dates: start: 20200522, end: 20210114

REACTIONS (7)
  - Meconium aspiration syndrome [Fatal]
  - Acute respiratory distress syndrome [Fatal]
  - Low birth weight baby [Not Recovered/Not Resolved]
  - Neonatal behavioural syndrome [Fatal]
  - Ventricular septal defect [Not Recovered/Not Resolved]
  - Pulmonary arterial hypertension [Fatal]
  - Foetal exposure during pregnancy [Recovered/Resolved]

NARRATIVE: CASE EVENT DATE: 20210214
